FAERS Safety Report 25259834 (Version 1)
Quarter: 2025Q2

REPORT INFORMATION
  Report Type: Spontaneous
  Country: US (occurrence: US)
  Receive Date: 20250501
  Receipt Date: 20250501
  Transmission Date: 20250717
  Serious: No
  Sender: ALEXION PHARMACEUTICALS
  Company Number: US-AstraZeneca-CH-00856958A

PATIENT

DRUGS (2)
  1. FASLODEX [Suspect]
     Active Substance: FULVESTRANT
     Indication: Breast cancer
  2. FASLODEX [Suspect]
     Active Substance: FULVESTRANT

REACTIONS (8)
  - Injection site pain [Unknown]
  - Vaginal haemorrhage [Unknown]
  - Myalgia [Recovered/Resolved]
  - Fatigue [Recovering/Resolving]
  - Brain fog [Recovered/Resolved]
  - Food allergy [Unknown]
  - Hypersensitivity [Unknown]
  - Bone pain [Recovered/Resolved]
